FAERS Safety Report 7917753-8 (Version None)
Quarter: 2011Q4

REPORT INFORMATION
  Report Type: 
  Country: None (occurrence: None)
  Receive Date: 20111116
  Receipt Date: 20111108
  Transmission Date: 20120403
  Serious: Yes (Other)
  Sender: FDA-Public Use
  Company Number: GB-JNJFOC-20110701744

PATIENT
  Sex: Female

DRUGS (12)
  1. TOPAMAX [Suspect]
     Indication: EPILEPSY
     Dosage: TWO 50 MG TABLETS
     Route: 048
     Dates: start: 20101025
  2. CLONAZEPAM [Concomitant]
     Route: 065
     Dates: start: 20100915
  3. TOPAMAX [Suspect]
     Route: 048
     Dates: start: 20110830, end: 20110830
  4. ANTIDEPRESSANTS [Concomitant]
     Indication: PRODUCT USED FOR UNKNOWN INDICATION
     Route: 065
  5. TOPIRAMATE [Suspect]
     Indication: EPILEPSY
     Dosage: 50 MG TWICE A DAY AND 25 MG TWICE A DAY
     Route: 048
     Dates: start: 20091130, end: 20100623
  6. TOPIRAMATE [Suspect]
     Route: 048
     Dates: start: 20100915, end: 20100915
  7. KEPPRA [Concomitant]
     Indication: PRODUCT USED FOR UNKNOWN INDICATION
     Route: 065
     Dates: start: 20110727
  8. KEPPRA [Concomitant]
     Route: 065
     Dates: start: 20110831
  9. FOLIC ACID [Concomitant]
     Indication: PRODUCT USED FOR UNKNOWN INDICATION
     Route: 065
     Dates: start: 20091130
  10. TOPAMAX [Suspect]
     Route: 048
     Dates: start: 20070703
  11. FLUOXETINE HCL [Suspect]
     Indication: PRODUCT USED FOR UNKNOWN INDICATION
     Route: 065
     Dates: start: 20101018, end: 20110831
  12. CLONAZEPAM [Concomitant]
     Indication: PRODUCT USED FOR UNKNOWN INDICATION
     Route: 065
     Dates: start: 20091130

REACTIONS (11)
  - IRRITABLE BOWEL SYNDROME [None]
  - MOOD SWINGS [None]
  - TOOTH LOSS [None]
  - SOMNOLENCE [None]
  - DEPRESSION [None]
  - FEELING ABNORMAL [None]
  - DIARRHOEA [None]
  - WEIGHT DECREASED [None]
  - PARAESTHESIA [None]
  - PALPITATIONS [None]
  - ABDOMINAL PAIN UPPER [None]
